FAERS Safety Report 19554056 (Version 1)
Quarter: 2021Q3

REPORT INFORMATION
  Report Type: Spontaneous
  Country: NL (occurrence: NL)
  Receive Date: 20210715
  Receipt Date: 20210715
  Transmission Date: 20211014
  Serious: Yes (Hospitalization)
  Sender: FDA-Public Use
  Company Number: NL-MYLANLABS-2021M1041801

PATIENT
  Sex: Male
  Weight: 107 kg

DRUGS (9)
  1. AMITRIPTYLINE HCL [Concomitant]
     Active Substance: AMITRIPTYLINE
     Dosage: 10 MILLIGRAM, TABLET
  2. ATORVASTATINE                      /01326101/ [Concomitant]
     Active Substance: ATORVASTATIN
     Dosage: 10 MILLIGRAM, TABLET
  3. COTRIMOXAZOL [Concomitant]
     Active Substance: SULFAMETHOXAZOLE\TRIMETHOPRIM
     Dosage: UNK,TABLET, 160/800 MG (MILLIGRAM)
  4. OXYCODON ACCORD [Concomitant]
     Dosage: 5 MILLIGRAM, CAPSULE
  5. ALENDRONINEZUUR [Concomitant]
     Active Substance: ALENDRONIC ACID
     Dosage: 10 MILLIGRAM, TABLET
  6. BARICITINIB. [Concomitant]
     Active Substance: BARICITINIB
     Dosage: 4 MILLIGRAM, TABLET
  7. BETAMETHASON                       /00008501/ [Concomitant]
     Active Substance: BETAMETHASONE
     Dosage: 0.5 MILLIGRAM PER GRAM,CREME
  8. PANTOPRAZOL                        /01263201/ [Concomitant]
     Active Substance: PANTOPRAZOLE
     Dosage: 20 MILLIGRAM, GASTRO?RESISTANT TABLET
  9. PREDNISONE. [Suspect]
     Active Substance: PREDNISONE
     Indication: POLYARTHRITIS
     Dosage: 5 MILLIGRAM, Q8H, THREE TIMES DAILY 1 PIECE
     Dates: start: 20190105, end: 20200901

REACTIONS (2)
  - Osteoarthritis [Recovered/Resolved]
  - Osteonecrosis [Recovered/Resolved]
